FAERS Safety Report 10023833 (Version 1)
Quarter: 2014Q1

REPORT INFORMATION
  Report Type: Spontaneous
  Country: US (occurrence: None)
  Receive Date: 20140319
  Receipt Date: 20140319
  Transmission Date: 20141002
  Serious: No
  Sender: FDA-Public Use
  Company Number: None

PATIENT
  Age: 58 Year
  Sex: Female
  Weight: 68.04 kg

DRUGS (8)
  1. OSPHENA (OSPEMIFENE) [Suspect]
     Indication: VULVOVAGINAL DRYNESS
     Dosage: 1 PILL
     Route: 048
     Dates: start: 20140307, end: 20140310
  2. OSPHENA (OSPEMIFENE) [Suspect]
     Indication: DYSPAREUNIA
     Dosage: 1 PILL
     Route: 048
     Dates: start: 20140307, end: 20140310
  3. PRILOSEC [Concomitant]
  4. SYNTHROID [Concomitant]
  5. VIT D [Concomitant]
  6. MULTIVITAMIN [Concomitant]
  7. VITAMIN E [Concomitant]
  8. VITAMIN C [Concomitant]

REACTIONS (1)
  - Stevens-Johnson syndrome [None]
